FAERS Safety Report 8547792-8 (Version None)
Quarter: 2012Q3

REPORT INFORMATION
  Report Type: 
  Country: None (occurrence: None)
  Receive Date: 20120727
  Receipt Date: 20120214
  Transmission Date: 20120928
  Serious: Yes (Other)
  Sender: FDA-Public Use
  Company Number: US-ASTRAZENECA-2012SE03641

PATIENT
  Age: 57 Year
  Sex: Female
  Weight: 59.9 kg

DRUGS (3)
  1. SEROQUEL XR [Suspect]
     Indication: BIPOLAR I DISORDER
     Route: 048
  2. SEROQUEL XR [Suspect]
     Route: 048
     Dates: start: 20111226
  3. SEROQUEL XR [Suspect]
     Route: 048

REACTIONS (3)
  - FEELING ABNORMAL [None]
  - MOVEMENT DISORDER [None]
  - DRUG INTOLERANCE [None]
